FAERS Safety Report 4464643-1 (Version None)
Quarter: 2004Q4

REPORT INFORMATION
  Report Type: 
  Country: None (occurrence: None)
  Receive Date: 20041004
  Receipt Date: 20040928
  Transmission Date: 20050328
  Serious: Yes (Death)
  Sender: FDA-Public Use
  Company Number: JP-JNJFOC-20040608642

PATIENT
  Sex: Female

DRUGS (17)
  1. REMICADE [Suspect]
  2. REMICADE [Suspect]
  3. REMICADE [Suspect]
  4. REMICADE [Suspect]
     Indication: RHEUMATOID ARTHRITIS
  5. METHOTREXATE SODIUM [Concomitant]
  6. METHOTREXATE SODIUM [Concomitant]
  7. METHOTREXATE SODIUM [Concomitant]
  8. METHOTREXATE SODIUM [Concomitant]
  9. RINDERON [Concomitant]
     Indication: RHEUMATOID ARTHRITIS
     Route: 049
  10. VOLTAREN [Concomitant]
     Indication: RHEUMATOID ARTHRITIS
     Route: 049
  11. MILTAX [Concomitant]
     Indication: RHEUMATOID ARTHRITIS
  12. FOLIANMIN [Concomitant]
     Route: 049
  13. ONEALFA [Concomitant]
     Route: 049
  14. ONEALFA [Concomitant]
     Route: 049
  15. CYTOTEC [Concomitant]
     Route: 049
  16. BONALON [Concomitant]
     Route: 049
  17. SELBEX [Concomitant]
     Route: 049

REACTIONS (6)
  - ASCITES [None]
  - CIRCULATORY COLLAPSE [None]
  - MALNUTRITION [None]
  - PLEURAL EFFUSION [None]
  - THERAPY NON-RESPONDER [None]
  - TUBERCULOSIS [None]
